FAERS Safety Report 5040244-1 (Version None)
Quarter: 2006Q2

REPORT INFORMATION
  Report Type: 
  Country: None (occurrence: None)
  Receive Date: 20060630
  Receipt Date: 20060620
  Transmission Date: 20061013
  Serious: Yes (Other)
  Sender: FDA-Public Use
  Company Number: GB-JNJFOC-20060604124

PATIENT
  Sex: Male

DRUGS (5)
  1. DURAGESIC-50 [Suspect]
     Route: 062
  2. DURAGESIC-50 [Suspect]
     Route: 062
  3. DURAGESIC-50 [Suspect]
     Indication: BONE PAIN
     Route: 062
  4. BUPRENORPHINE HCL [Suspect]
     Indication: ANALGESIC EFFECT
     Route: 065
  5. BUPRENORPHINE HCL [Suspect]
     Route: 062

REACTIONS (8)
  - ANXIETY [None]
  - APHASIA [None]
  - ARRHYTHMIA [None]
  - DEPRESSED MOOD [None]
  - INCORRECT ROUTE OF DRUG ADMINISTRATION [None]
  - RESPIRATORY DISORDER [None]
  - SCREAMING [None]
  - TREMOR [None]
